FAERS Safety Report 6841023-2 (Version None)
Quarter: 2010Q3

REPORT INFORMATION
  Report Type: 
  Country: None (occurrence: None)
  Receive Date: 20100714
  Receipt Date: 20070625
  Transmission Date: 20110219
  Serious: No
  Sender: FDA-Public Use
  Company Number: US-PFIZER INC-2007052459

PATIENT
  Sex: Male
  Weight: 65.909 kg

DRUGS (6)
  1. CHANTIX [Suspect]
     Indication: SMOKING CESSATION THERAPY
     Dates: start: 20070501, end: 20070624
  2. NORVASC [Concomitant]
  3. PLAVIX [Concomitant]
  4. VALSARTAN [Concomitant]
  5. LABETALOL HCL [Concomitant]
  6. NIASPAN [Concomitant]

REACTIONS (2)
  - MALAISE [None]
  - NAUSEA [None]
